FAERS Safety Report 10853214 (Version 1)
Quarter: 2015Q1

REPORT INFORMATION
  Report Type: Spontaneous
  Country: US (occurrence: None)
  Receive Date: 20150218
  Receipt Date: 20150218
  Transmission Date: 20150721
  Serious: Yes (Death)
  Sender: FDA-Public Use
  Company Number: NSR_01881_2015

PATIENT
  Age: 53 Year
  Sex: Male

DRUGS (3)
  1. HYDROXYZINE [Suspect]
     Active Substance: HYDROXYZINE\HYDROXYZINE HYDROCHLORIDE
     Indication: PRODUCT USED FOR UNKNOWN INDICATION
  2. COCAINE [Suspect]
     Active Substance: COCAINE
  3. HEROIN [Suspect]
     Active Substance: DIACETYLMORPHINE

REACTIONS (2)
  - Poisoning [None]
  - Drug abuse [None]

NARRATIVE: CASE EVENT DATE: 2013
